FAERS Safety Report 11235879 (Version 1)
Quarter: 2015Q3

REPORT INFORMATION
  Report Type: Report from Study
  Country: NL (occurrence: NL)
  Receive Date: 20150702
  Receipt Date: 20150702
  Transmission Date: 20151125
  Serious: Yes (Life-Threatening, Hospitalization)
  Sender: FDA-Public Use
  Company Number: US-ASTRAZENECA-2014SE17684

PATIENT
  Age: 111 Day
  Sex: Female
  Weight: 7.5 kg

DRUGS (2)
  1. SYNAGIS [Suspect]
     Active Substance: PALIVIZUMAB
     Indication: PREMATURE BABY
     Route: 030
     Dates: start: 201309, end: 201404
  2. FERROFUMARATE [Concomitant]
     Indication: IRON DEFICIENCY
     Dosage: 20  1 PCH SUSPENSION, EVERY DAY NOS
     Route: 048

REACTIONS (4)
  - Vomiting [Recovered/Resolved]
  - Pyrexia [Recovered/Resolved]
  - Fluid intake reduced [Recovered/Resolved]
  - Cough [Recovered/Resolved]

NARRATIVE: CASE EVENT DATE: 20130906
